FAERS Safety Report 4989011-5 (Version None)
Quarter: 2006Q2

REPORT INFORMATION
  Report Type: 
  Country: None (occurrence: None)
  Receive Date: 20060425
  Receipt Date: 20060417
  Transmission Date: 20061013
  Serious: Yes (Other)
  Sender: FDA-Public Use
  Company Number: S06-USA-01506-01

PATIENT
  Age: 59 Year
  Sex: Female

DRUGS (5)
  1. THYROID TAB [Suspect]
     Indication: HYPOTHYROIDISM
     Dosage: 120 MG QD PO
     Route: 048
     Dates: start: 20010101, end: 20060406
  2. THYROID TAB [Suspect]
     Indication: HYPOTHYROIDISM
     Dosage: 120 MG QD PO
     Route: 048
     Dates: start: 20060414
  3. GLYCOLAX (POLYETHYLENE GLYCOL) [Suspect]
     Indication: CONSTIPATION
     Dates: start: 20060403, end: 20060406
  4. ASCORBIC ACID [Concomitant]
  5. MAGNESIUM [Concomitant]

REACTIONS (5)
  - CONSTIPATION [None]
  - DRUG INTERACTION [None]
  - HYPERTHYROIDISM [None]
  - MANIA [None]
  - THYROID FUNCTION TEST ABNORMAL [None]
